FAERS Safety Report 6078977-0 (Version None)
Quarter: 2009Q1

REPORT INFORMATION
  Report Type: 
  Country: None (occurrence: None)
  Receive Date: 20090216
  Receipt Date: 20090206
  Transmission Date: 20090719
  Serious: Yes (Other)
  Sender: FDA-Public Use
  Company Number: US-ABBOTT-09P-163-0501959-00

PATIENT
  Sex: Female
  Weight: 83.536 kg

DRUGS (4)
  1. HUMIRA [Suspect]
     Indication: PSORIATIC ARTHROPATHY
     Dates: start: 20050101, end: 20081201
  2. HUMIRA [Suspect]
     Dates: start: 20090101, end: 20090101
  3. PROZAC [Concomitant]
     Indication: DRUG USE FOR UNKNOWN INDICATION
  4. OMEPRAZOLE [Concomitant]
     Indication: GASTRITIS

REACTIONS (1)
  - MYELODYSPLASTIC SYNDROME [None]
